FAERS Safety Report 6661340-9 (Version None)
Quarter: 2010Q1

REPORT INFORMATION
  Report Type: 
  Country: None (occurrence: None)
  Receive Date: 20100331
  Receipt Date: 20100322
  Transmission Date: 20100710
  Serious: Yes (Other)
  Sender: FDA-Public Use
  Company Number: PHEH2008US04337

PATIENT
  Sex: Female

DRUGS (22)
  1. AREDIA [Suspect]
     Dosage: UNK
  2. ZOMETA [Suspect]
  3. FOSAMAX [Suspect]
  4. ACTONEL [Suspect]
  5. BENTYL [Concomitant]
  6. REGLAN [Concomitant]
  7. ALLEGRA D 24 HOUR [Concomitant]
  8. NEXIUM [Concomitant]
  9. OXYGEN [Concomitant]
  10. DEXAMETHASONE [Concomitant]
  11. FLEXERIL [Concomitant]
  12. AUGMENTIN                               /SCH/ [Concomitant]
  13. GEMZAR [Concomitant]
  14. NEULASTA [Concomitant]
  15. CISPLATIN [Concomitant]
  16. CIPRO [Concomitant]
  17. CARBOPLATIN [Concomitant]
  18. ARANESP [Concomitant]
  19. CALTRATE [Concomitant]
  20. FLAGYL [Concomitant]
  21. ZETIA [Concomitant]
  22. TRAZODONE [Concomitant]

REACTIONS (29)
  - ANAEMIA [None]
  - ANHEDONIA [None]
  - ANXIETY [None]
  - ARTHROPATHY [None]
  - ATELECTASIS [None]
  - CERVICAL SPINAL STENOSIS [None]
  - DEEP VEIN THROMBOSIS [None]
  - DISABILITY [None]
  - DYSURIA [None]
  - EXOSTOSIS [None]
  - FIBROMYALGIA [None]
  - HYPOKALAEMIA [None]
  - HYPONATRAEMIA [None]
  - INJURY [None]
  - INTERVERTEBRAL DISC DEGENERATION [None]
  - LEUKOCYTOSIS [None]
  - METASTATIC NEOPLASM [None]
  - MUSCULOSKELETAL PAIN [None]
  - NECK PAIN [None]
  - OSTEOARTHRITIS [None]
  - OSTEONECROSIS [None]
  - OSTEOPOROSIS [None]
  - PAIN [None]
  - PALPITATIONS [None]
  - PERNICIOUS ANAEMIA [None]
  - SKIN LACERATION [None]
  - SMALL CELL LUNG CANCER STAGE UNSPECIFIED [None]
  - THROMBOCYTOSIS [None]
  - TOOTH EXTRACTION [None]
